FAERS Safety Report 8417445-5 (Version None)
Quarter: 2012Q2

REPORT INFORMATION
  Report Type: 
  Country: None (occurrence: None)
  Receive Date: 20120606
  Receipt Date: 20120531
  Transmission Date: 20120825
  Serious: Yes (Other)
  Sender: FDA-Public Use
  Company Number: PHHY2012IN046693

PATIENT
  Age: 49 Year
  Sex: Male

DRUGS (1)
  1. LEVOFLOXACIN [Suspect]
     Indication: SINUSITIS
     Dosage: 500 MG, QD
     Route: 048

REACTIONS (15)
  - OPTIC NEURITIS [None]
  - EYE PAIN [None]
  - SCOTOMA [None]
  - INTRAOCULAR PRESSURE INCREASED [None]
  - BLINDNESS [None]
  - COLOUR BLINDNESS [None]
  - PAPILLITIS [None]
  - OPTIC DISC HAEMORRHAGE [None]
  - VISUAL ACUITY REDUCED [None]
  - CONFUSIONAL STATE [None]
  - PUPILLARY REFLEX IMPAIRED [None]
  - VITREOUS DISORDER [None]
  - PAPILLOEDEMA [None]
  - RESPIRATORY DISTRESS [None]
  - DIZZINESS [None]
